FAERS Safety Report 5385305-2 (Version None)
Quarter: 2007Q3

REPORT INFORMATION
  Report Type: 
  Country: None (occurrence: None)
  Receive Date: 20070712
  Receipt Date: 20070703
  Transmission Date: 20080115
  Serious: Yes (Hospitalization, Other)
  Sender: FDA-Public Use
  Company Number: US-ROCHE-491478

PATIENT
  Age: 50 Year
  Sex: Male
  Weight: 59.9 kg

DRUGS (5)
  1. PEGASYS [Suspect]
     Indication: HEPATITIS C
     Dosage: STRENGTH/FORMULATION REPORTED AS 180 MCG/0.5 CC
     Route: 058
     Dates: start: 20061001, end: 20070320
  2. RIBAVIRIN [Suspect]
     Indication: HEPATITIS C
     Dosage: DOSE REPORTED AS 2 TABLETS TWICE DAILY
     Route: 048
     Dates: start: 20061001, end: 20070320
  3. NEXIUM [Concomitant]
     Indication: GASTRITIS
     Route: 048
  4. ULTRAM [Concomitant]
     Indication: PAIN
     Route: 048
  5. HYDROCHLOROTHIAZIDE [Concomitant]
     Indication: HYPERTENSION
     Route: 048

REACTIONS (4)
  - ABDOMINAL PAIN [None]
  - ANAEMIA [None]
  - PANCREATIC PSEUDOCYST [None]
  - PANCREATITIS [None]
